FAERS Safety Report 4721885-5 (Version None)
Quarter: 2005Q3

REPORT INFORMATION
  Report Type: 
  Country: None (occurrence: None)
  Receive Date: 20050721
  Receipt Date: 20050524
  Transmission Date: 20060218
  Serious: No
  Sender: FDA-Public Use
  Company Number: US-BRISTOL-MYERS SQUIBB COMPANY-12980702

PATIENT
  Age: 80 Year
  Sex: Male
  Weight: 75 kg

DRUGS (4)
  1. COUMADIN [Suspect]
     Indication: HEART VALVE REPLACEMENT
     Dosage: TEMPORARILY INTERRUPTED FOR ONE DAY (24-MAY-2005) AND RESUME 2.5 MG ON 25-MAY-2005.
  2. ACETAMINOPHEN [Concomitant]
     Dosage: BEGAN 1 AND 1/2 WEEKS AGO FOR A DURATION OF 5 - 6 DAYS
     Dates: start: 20050501, end: 20050501
  3. LIPITOR [Concomitant]
  4. CARDURA [Concomitant]

REACTIONS (1)
  - PROTHROMBIN TIME PROLONGED [None]
